FAERS Safety Report 5814960-5 (Version None)
Quarter: 2008Q3

REPORT INFORMATION
  Report Type: 
  Country: None (occurrence: None)
  Receive Date: 20080718
  Receipt Date: 20080711
  Transmission Date: 20090109
  Serious: Yes (Hospitalization)
  Sender: FDA-Public Use
  Company Number: PHBS2008JP04826

PATIENT
  Sex: Female

DRUGS (5)
  1. MIKELAN (NVO) [Suspect]
     Indication: OPEN ANGLE GLAUCOMA
     Dosage: 1 GTT, QD
     Route: 047
     Dates: start: 20080202, end: 20080418
  2. MIKELAN (NVO) [Suspect]
     Indication: GLAUCOMA
  3. XALATAN [Concomitant]
     Dosage: UNK
     Route: 047
  4. LIVOSTIN [Concomitant]
     Dosage: UNK
     Route: 047
     Dates: end: 20080202
  5. SODIUM HYALURONATE [Concomitant]
     Dosage: UNK
     Route: 047
     Dates: end: 20080202

REACTIONS (4)
  - BRADYCARDIA [None]
  - CARDIAC PACEMAKER INSERTION [None]
  - FALL [None]
  - LOSS OF CONSCIOUSNESS [None]
